FAERS Safety Report 7467213-6 (Version None)
Quarter: 2011Q2

REPORT INFORMATION
  Report Type: 
  Country: None (occurrence: None)
  Receive Date: 20110509
  Receipt Date: 20110503
  Transmission Date: 20111010
  Serious: Yes (Death, Hospitalization)
  Sender: FDA-Public Use
  Company Number: PHHO2011IT07661

PATIENT
  Sex: Female
  Weight: 60 kg

DRUGS (8)
  1. OMEPRAZOLE [Concomitant]
  2. CARDURA                                 /IRE/ [Concomitant]
  3. ALDACTONE [Concomitant]
  4. ENAPREN [Concomitant]
  5. CATAPRESAN                              /GFR/ [Concomitant]
  6. EFEXOR                                  /BEL/ [Concomitant]
  7. DEXAMETHASONE [Concomitant]
  8. AFINITOR [Suspect]
     Indication: CENTRAL NERVOUS SYSTEM LYMPHOMA
     Dosage: 5 MG, UNK
     Route: 048
     Dates: start: 20110119, end: 20110222

REACTIONS (1)
  - RECTAL HAEMORRHAGE [None]
